FAERS Safety Report 5629554-4 (Version None)
Quarter: 2008Q1

REPORT INFORMATION
  Report Type: 
  Country: None (occurrence: None)
  Receive Date: 20080214
  Receipt Date: 20080214
  Transmission Date: 20080703
  Serious: Yes (Hospitalization)
  Sender: FDA-Public Use
  Company Number: None

PATIENT
  Sex: Female
  Weight: 49 kg

DRUGS (4)
  1. FLUOROURACIL [Suspect]
     Dosage: 3175 MG
  2. BEVACIZUMAB (RHUMAB VEGF) [Suspect]
     Dosage: 245 MG
  3. LEUCOVORIN CALCIUM [Suspect]
     Dosage: 575 MG
  4. ELOXATIN [Suspect]
     Dosage: 93 MG

REACTIONS (6)
  - DEHYDRATION [None]
  - DIARRHOEA [None]
  - METABOLIC ACIDOSIS [None]
  - NAUSEA [None]
  - RENAL FAILURE [None]
  - VOMITING [None]
